FAERS Safety Report 5272575-4 (Version None)
Quarter: 2007Q1

REPORT INFORMATION
  Report Type: 
  Country: None (occurrence: None)
  Receive Date: 20070319
  Receipt Date: 20070307
  Transmission Date: 20070707
  Serious: Yes (Hospitalization)
  Sender: FDA-Public Use
  Company Number: 430017K07USA

PATIENT
  Age: 57 Year
  Sex: Female

DRUGS (1)
  1. NOVANTRONE [Suspect]
     Indication: MULTIPLE SCLEROSIS
     Dosage: 1 IN 3 MONTHS, INTRAVENOUS
     Route: 042
     Dates: start: 20061001

REACTIONS (5)
  - CHROMATURIA [None]
  - FALL [None]
  - HIP FRACTURE [None]
  - URINARY INCONTINENCE [None]
  - URINE ODOUR ABNORMAL [None]
